FAERS Safety Report 8820429 (Version 3)
Quarter: 2012Q4

REPORT INFORMATION
  Report Type: 
  Country: CA (occurrence: CA)
  Receive Date: 20121002
  Receipt Date: 20121129
  Transmission Date: 20130627
  Serious: Yes (Other)
  Sender: FDA-Public Use
  Company Number: CA-SHIRE-ALL1-2012-04689

PATIENT
  Age: 57 Year
  Sex: Male
  Weight: 71.2 kg

DRUGS (3)
  1. VPRIV [Suspect]
     Indication: GAUCHER^S DISEASE
     Dosage: 3,200 IU, 1x/2wks (Alternating wit 2800 IU)
     Route: 041
     Dates: start: 20111215
  2. VPRIV [Suspect]
     Dosage: 2800 IU, 1x/2wks (alternating with 3200 IU)
     Route: 041
     Dates: start: 20111215
  3. METFORMIN [Concomitant]
     Indication: DIABETES MELLITUS
     Dosage: 500 mg, 3x/day:tid
     Route: 048
     Dates: start: 2009

REACTIONS (2)
  - Pain in extremity [Not Recovered/Not Resolved]
  - Muscular weakness [Not Recovered/Not Resolved]
